FAERS Safety Report 8667357 (Version 3)
Quarter: 2012Q4

REPORT INFORMATION
  Report Type: 
  Country: US (occurrence: US)
  Receive Date: 20120717
  Receipt Date: 20120913
  Transmission Date: 20130627
  Serious: No
  Sender: FDA-Public Use
  Company Number: US-PFIZER INC-2012168074

PATIENT
  Age: 68 Year
  Sex: Male
  Weight: 103 kg

DRUGS (17)
  1. SUTENT [Suspect]
     Indication: METASTATIC RENAL CELL CARCINOMA
     Dosage: 50 mg, cycle of 42 days (daily)
     Dates: start: 20120618, end: 20120703
  2. SUTENT [Suspect]
     Dosage: 37.5 mg, UNK
     Dates: start: 20120720, end: 2012
  3. SUTENT [Suspect]
     Dosage: UNK
     Dates: start: 20120831
  4. ALLOPURINOL [Concomitant]
     Indication: GOUT
     Dosage: 300 mg, UNK
  5. DEXAMETHASONE [Concomitant]
     Indication: BRAIN NEOPLASM
     Dosage: 4 mg, 2x/day
     Dates: start: 20120525
  6. DEXAMETHASONE [Concomitant]
     Dosage: 2 mg, 1x/day
  7. VITAMIN C [Concomitant]
     Dosage: UNK
  8. CALCIUM CITRATE [Concomitant]
     Dosage: UNK
  9. CO-Q-10 [Concomitant]
     Dosage: UNK
  10. FISH OIL [Concomitant]
     Dosage: UNK
  11. ASPIRIN [Concomitant]
     Dosage: 325 mg, UNK
  12. SIMVASTATIN [Concomitant]
     Dosage: UNK
  13. LOSARTAN [Concomitant]
     Dosage: 25 mg, 1x/day
  14. CARVEDILOL [Concomitant]
     Dosage: 3.25 mg, 2x/day
  15. TYLENOL [Concomitant]
     Indication: SLEEP DISORDER
     Dosage: UNK
  16. LASIX [Concomitant]
     Indication: OEDEMA PERIPHERAL
     Dosage: as needed
  17. POTASSIUM [Concomitant]
     Dosage: as needed

REACTIONS (17)
  - Neuropathy peripheral [Unknown]
  - Pain in extremity [Recovered/Resolved]
  - Pyrexia [Recovered/Resolved]
  - Epistaxis [Unknown]
  - Fatigue [Not Recovered/Not Resolved]
  - Asthenia [Not Recovered/Not Resolved]
  - Dyspnoea [Unknown]
  - Muscle spasms [Unknown]
  - Decreased appetite [Unknown]
  - Weight decreased [Unknown]
  - Platelet count decreased [Unknown]
  - Weight increased [Unknown]
  - Dysgeusia [Unknown]
  - Headache [Unknown]
  - Alopecia [Unknown]
  - Dermatitis [Unknown]
  - Skin exfoliation [Recovering/Resolving]
